FAERS Safety Report 23692265 (Version 1)
Quarter: 2024Q2

REPORT INFORMATION
  Report Type: Spontaneous
  Country: US (occurrence: US)
  Receive Date: 20240401
  Receipt Date: 20240401
  Transmission Date: 20240716
  Serious: No
  Sender: FDA-Public Use
  Company Number: US-TEVA-VS-3150348

PATIENT
  Age: 72 Year
  Weight: 71.94 kg

DRUGS (1)
  1. QVAR REDIHALER [Suspect]
     Active Substance: BECLOMETHASONE DIPROPIONATE
     Indication: Product used for unknown indication
     Dosage: 40 MCG
     Route: 065

REACTIONS (7)
  - Oral pain [Unknown]
  - Candida infection [Unknown]
  - Circumoral swelling [Unknown]
  - Mouth swelling [Unknown]
  - Lip swelling [Unknown]
  - Sinus congestion [Unknown]
  - Oral discomfort [Unknown]
